FAERS Safety Report 9396768 (Version 2)
Quarter: 2013Q3

REPORT INFORMATION
  Report Type: Spontaneous
  Country: JP (occurrence: JP)
  Receive Date: 20130712
  Receipt Date: 20130730
  Transmission Date: 20140515
  Serious: Yes (Hospitalization)
  Sender: FDA-Public Use
  Company Number: JP-ASTRAZENECA-2013SE51258

PATIENT
  Sex: 0

DRUGS (3)
  1. SYMBICORT TURBUHALER [Suspect]
     Indication: ASTHMA
     Dosage: FOUR DOSAGE FORM DAILY.
     Route: 055
     Dates: start: 201302, end: 201305
  2. SYMBICORT TURBUHALER [Suspect]
     Indication: ASTHMA
     Dosage: TWO DOSAGE FORM EACH IN MORNING AND AT NIGHT, ONE DOSAGE FORM IN EVENING.
     Route: 055
     Dates: start: 201305
  3. SYMBICORT TURBUHALER [Suspect]
     Indication: ASTHMA
     Dosage: SIX DOSAGE FORM DAILY.
     Route: 055
     Dates: end: 201306

REACTIONS (2)
  - Asthma [Recovered/Resolved]
  - Intentional drug misuse [Unknown]
